FAERS Safety Report 8169237-2 (Version None)
Quarter: 2012Q1

REPORT INFORMATION
  Report Type: 
  Country: None (occurrence: None)
  Receive Date: 20120228
  Receipt Date: 20120222
  Transmission Date: 20120608
  Serious: Yes (Life-Threatening)
  Sender: FDA-Public Use
  Company Number: RU-ASTRAZENECA-2011SE71400

PATIENT
  Age: 50 Year
  Sex: Female
  Weight: 80 kg

DRUGS (13)
  1. MARCAINE [Suspect]
     Indication: ANAESTHESIA
     Route: 037
     Dates: start: 20111124
  2. SODIUM OXIBATUM [Concomitant]
  3. DOPAMINE HCL [Concomitant]
  4. EPINEPHRINE [Concomitant]
  5. PERFTORAN [Concomitant]
  6. HEMOHES [Concomitant]
  7. FRAGMIN [Concomitant]
  8. MIDAZOLAM [Concomitant]
     Dosage: UNK
     Route: 065
     Dates: start: 20111124
  9. GAMMA-HYDROXYBUTYRIC ACID [Concomitant]
     Dosage: UNK
     Route: 065
     Dates: start: 20111124
  10. CERAXONE [Concomitant]
  11. DEXAMETHASONE [Concomitant]
     Dosage: UNK
     Route: 065
     Dates: start: 20111124
  12. CYTOFLAVINE [Concomitant]
  13. OMES [Concomitant]

REACTIONS (4)
  - CARDIAC ARREST [None]
  - BRAIN OEDEMA [None]
  - HYPOXIC-ISCHAEMIC ENCEPHALOPATHY [None]
  - RESPIRATORY DISTRESS [None]
